FAERS Safety Report 18807468 (Version 1)
Quarter: 2021Q1

REPORT INFORMATION
  Report Type: Spontaneous
  Country: US (occurrence: US)
  Receive Date: 20210128
  Receipt Date: 20210128
  Transmission Date: 20210419
  Serious: No
  Sender: FDA-Public Use
  Company Number: None

PATIENT
  Age: 36 Year
  Sex: Male
  Weight: 99.34 kg

DRUGS (1)
  1. GENERIC BUP/NAL 8/2MG [Suspect]
     Active Substance: BUPRENORPHINE HYDROCHLORIDE\NALOXONE HYDROCHLORIDE
     Indication: DRUG DEPENDENCE
     Dosage: ?          OTHER DOSE:8/2 MG;?
     Route: 060
     Dates: start: 20180214, end: 20201229

REACTIONS (3)
  - Withdrawal syndrome [None]
  - Loss of personal independence in daily activities [None]
  - Drug ineffective [None]

NARRATIVE: CASE EVENT DATE: 20201229
